FAERS Safety Report 8986425 (Version 1)
Quarter: 2012Q4

REPORT INFORMATION
  Report Type: 
  Country: US (occurrence: US)
  Receive Date: 20121227
  Receipt Date: 20121227
  Transmission Date: 20130627
  Serious: Yes (Death, Hospitalization, Other)
  Sender: FDA-Public Use
  Company Number: US-SANOFI-AVENTIS-2012SA092055

PATIENT
  Sex: Male

DRUGS (3)
  1. LANTUS SOLOSTAR [Suspect]
     Route: 058
  2. SOLOSTAR [Suspect]
  3. HUMALOG [Suspect]
     Route: 065

REACTIONS (5)
  - Myocardial infarction [Fatal]
  - Renal failure [Unknown]
  - Leg amputation [Unknown]
  - Finger amputation [Unknown]
  - Blindness unilateral [Unknown]
